FAERS Safety Report 6020484-5 (Version None)
Quarter: 2008Q4

REPORT INFORMATION
  Report Type: 
  Country: None (occurrence: None)
  Receive Date: 20081226
  Receipt Date: 20081216
  Transmission Date: 20090506
  Serious: Yes (Other)
  Sender: FDA-Public Use
  Company Number: NL-ABBOTT-08P-114-0494068-00

PATIENT
  Sex: Female
  Weight: 68 kg

DRUGS (9)
  1. HUMIRA [Suspect]
     Indication: RHEUMATOID ARTHRITIS
     Route: 058
     Dates: start: 20040601
  2. METHOTREXATE [Concomitant]
     Indication: RHEUMATOID ARTHRITIS
     Route: 048
     Dates: start: 20010101
  3. INDAPAMIDE [Concomitant]
     Indication: DRUG USE FOR UNKNOWN INDICATION
     Route: 048
  4. VERAPAMIL [Concomitant]
     Indication: SUPRAVENTRICULAR TACHYCARDIA
     Route: 048
     Dates: start: 20070101
  5. SERETIDE [Concomitant]
     Indication: DRUG USE FOR UNKNOWN INDICATION
  6. COMBIVENT [Concomitant]
     Indication: DRUG USE FOR UNKNOWN INDICATION
  7. CALCI/O [Concomitant]
     Indication: DRUG USE FOR UNKNOWN INDICATION
     Dosage: 500MG/400IE DAILY
  8. ALENDROSORINEACID [Concomitant]
     Indication: DRUG USE FOR UNKNOWN INDICATION
  9. DIOVAN [Concomitant]
     Indication: DRUG USE FOR UNKNOWN INDICATION

REACTIONS (2)
  - ACTINIC KERATOSIS [None]
  - BASAL CELL CARCINOMA [None]
